FAERS Safety Report 4803819-8 (Version None)
Quarter: 2005Q4

REPORT INFORMATION
  Report Type: 
  Country: None (occurrence: None)
  Receive Date: 20051014
  Receipt Date: 20051007
  Transmission Date: 20060501
  Serious: Yes (Hospitalization)
  Sender: FDA-Public Use
  Company Number: GXKR2005ES01762

PATIENT
  Age: 97 Year
  Sex: Female

DRUGS (3)
  1. TERMALGIN + CODEINE (NCH) (NGX) (ACETAMINOPHEN (PARACETAMOL), CODEINE [Suspect]
     Dosage: 2 TABLETS, ORAL
     Route: 048
     Dates: start: 20050814
  2. AMERIDE (AMILORIDE HYDROCHLORIDE, HYDROCHLOROTHIAZIDE) [Concomitant]
  3. SALBUTAMOL (SALBUTAMOL) [Concomitant]

REACTIONS (2)
  - CONFUSIONAL STATE [None]
  - HALLUCINATION [None]
